FAERS Safety Report 9768095 (Version 1)
Quarter: 2013Q4

REPORT INFORMATION
  Report Type: Spontaneous
  Country: US (occurrence: US)
  Receive Date: 20131217
  Receipt Date: 20131217
  Transmission Date: 20140711
  Serious: Yes (Death)
  Sender: FDA-Public Use
  Company Number: US-PFIZER INC-2013358306

PATIENT
  Age: 55 Year
  Sex: Male

DRUGS (1)
  1. VFEND [Suspect]
     Dosage: 200 MG, UNK
     Dates: start: 20120724

REACTIONS (2)
  - Disease progression [Fatal]
  - Respiratory failure [Fatal]
